FAERS Safety Report 19260337 (Version 1)
Quarter: 2021Q2

REPORT INFORMATION
  Report Type: Spontaneous
  Country: PL (occurrence: PL)
  Receive Date: 20210514
  Receipt Date: 20210514
  Transmission Date: 20210717
  Serious: Yes (Other)
  Sender: FDA-Public Use
  Company Number: PL-GLAXOSMITHKLINE-PLCH2021027925

PATIENT
  Age: 67 Year
  Sex: Female

DRUGS (3)
  1. DICLOFENAC [Suspect]
     Active Substance: DICLOFENAC
     Indication: ANTIINFLAMMATORY THERAPY
     Dosage: 75 MILLIGRAM, DAILY
     Route: 065
  2. PANTOPRAZOLE [Suspect]
     Active Substance: PANTOPRAZOLE
     Indication: PRODUCT USED FOR UNKNOWN INDICATION
     Dosage: 20 MG, UNKNOWN
     Route: 065
  3. ACETYLSALICYLIC ACID [Suspect]
     Active Substance: ASPIRIN
     Indication: PRODUCT USED FOR UNKNOWN INDICATION
     Dosage: 75 MG, UNKNOWN
     Route: 065

REACTIONS (6)
  - Peptic ulcer [Unknown]
  - Ulcer [Unknown]
  - Melaena [Unknown]
  - Asthenia [Unknown]
  - Inappropriate schedule of product administration [Unknown]
  - Anaemia [Unknown]
